FAERS Safety Report 7909923-X (Version None)
Quarter: 2011Q4

REPORT INFORMATION
  Report Type: 
  Country: None (occurrence: None)
  Receive Date: 20111111
  Receipt Date: 20111107
  Transmission Date: 20120403
  Serious: Yes (Hospitalization)
  Sender: FDA-Public Use
  Company Number: US-ROCHE-795331

PATIENT
  Sex: Female
  Weight: 97.7 kg

DRUGS (25)
  1. LORTAB [Concomitant]
     Dates: start: 20110806
  2. VYTORIN [Concomitant]
     Dosage: TDD REPORTED AS 10/40 MG
  3. ACTEMRA [Suspect]
     Route: 042
  4. ACTEMRA [Suspect]
     Indication: RHEUMATOID ARTHRITIS
     Route: 042
  5. PLAVIX [Concomitant]
  6. GLIMEPIRIDE [Concomitant]
  7. TRAMADOL HCL [Concomitant]
     Dates: start: 20101217
  8. IPRATROPIUM BROMIDE [Concomitant]
     Dates: start: 20101008
  9. ACTEMRA [Suspect]
     Route: 042
  10. DARVOCET-N 50 [Concomitant]
     Dosage: DRUG NAME REPORTED AS DARVOCET N-100
  11. PLAVIX [Concomitant]
  12. ACTEMRA [Suspect]
     Route: 042
  13. FOLIC ACID [Concomitant]
  14. TYLENOL-500 [Concomitant]
  15. CALCIUM [Concomitant]
  16. ASPIRIN [Concomitant]
  17. ACTEMRA [Suspect]
     Indication: RHEUMATOID ARTHRITIS
     Route: 042
  18. ACTEMRA [Suspect]
     Route: 042
  19. ACTEMRA [Suspect]
     Route: 042
  20. METHOTREXATE [Concomitant]
  21. METHOTREXATE [Concomitant]
  22. CALCIUM [Concomitant]
  23. ALBUTEROL SULFATE [Concomitant]
     Dates: start: 20101008
  24. KEFLEX [Concomitant]
     Dates: start: 20110812, end: 20110817
  25. ANCEF [Concomitant]
     Dates: start: 20110805, end: 20110806

REACTIONS (1)
  - AORTIC ANEURYSM [None]
